FAERS Safety Report 4953098-6 (Version None)
Quarter: 2006Q1

REPORT INFORMATION
  Report Type: 
  Country: None (occurrence: None)
  Receive Date: 20060324
  Receipt Date: 20041115
  Transmission Date: 20060701
  Serious: Yes (Hospitalization)
  Sender: FDA-Public Use
  Company Number: 2004CG02286

PATIENT
  Age: 42 Year
  Sex: Male

DRUGS (5)
  1. MOPRAL [Suspect]
     Route: 048
  2. LAROXYL [Suspect]
     Route: 048
     Dates: start: 20021215
  3. TEMESTA [Suspect]
     Route: 048
     Dates: start: 20030101
  4. AUGMENTIN '125' [Suspect]
     Route: 048
     Dates: start: 20030210
  5. SKENAN [Suspect]
     Route: 048
     Dates: start: 20030210

REACTIONS (2)
  - LYMPHADENOPATHY [None]
  - RASH PRURITIC [None]
